FAERS Safety Report 17048340 (Version 4)
Quarter: 2020Q1

REPORT INFORMATION
  Report Type: Spontaneous
  Country: US (occurrence: US)
  Receive Date: 20191119
  Receipt Date: 20200103
  Transmission Date: 20200409
  Serious: No
  Sender: FDA-Public Use
  Company Number: US-PFIZER INC-2019499209

PATIENT
  Age: 57 Year
  Sex: Female
  Weight: 63.5 kg

DRUGS (12)
  1. VALSARTAN. [Concomitant]
     Active Substance: VALSARTAN
     Indication: HYPERTENSION
     Dosage: 80 MG, 1X/DAY
  2. METOPROLOL TARTRATE. [Concomitant]
     Active Substance: METOPROLOL TARTRATE
     Indication: HYPERTENSION
     Dosage: UNK, 2X/DAY (50 MG, 40 BID)
  3. LATANOPROST. [Suspect]
     Active Substance: LATANOPROST
     Indication: GLAUCOMA
     Dosage: UNK, 1X/DAY  (ONCE AT BED TIME)
  4. OLOPATADINE. [Concomitant]
     Active Substance: OLOPATADINE
     Indication: HYPERSENSITIVITY
     Dosage: UNK
  5. ARTANE [Concomitant]
     Active Substance: TRIHEXYPHENIDYL HYDROCHLORIDE
     Indication: DYSTONIA
     Dosage: 2 MG, 1X/DAY
  6. RANITIDINE. [Concomitant]
     Active Substance: RANITIDINE
     Dosage: 150 MG, 2X/DAY
  7. HYDROCHLORZIDE [Concomitant]
     Active Substance: HYDROCHLOROTHIAZIDE
     Indication: HYPERTENSION
     Dosage: 25 MG, 1X/DAY
  8. RHOPRESSA [Concomitant]
     Active Substance: NETARSUDIL MESYLATE
     Indication: GLAUCOMA
     Dosage: UNK UNK, 1X/DAY (BED TIME)
  9. ZYRTEC [Concomitant]
     Active Substance: CETIRIZINE HYDROCHLORIDE
     Indication: HYPERSENSITIVITY
     Dosage: 10 MG, UNK
  10. AMLODIPINE BESILATE [Concomitant]
     Active Substance: AMLODIPINE BESYLATE
     Indication: HYPERTENSION
     Dosage: 5 MG, 1X/DAY (5 MG, ONCE A DAY)
  11. BACLOFEN. [Concomitant]
     Active Substance: BACLOFEN
     Indication: DYSTONIA
     Dosage: 10 MG, 3X/DAY
  12. COMBIGAN [Concomitant]
     Active Substance: BRIMONIDINE TARTRATE\TIMOLOL MALEATE
     Dosage: UNK UNK, 2X/DAY

REACTIONS (1)
  - Drug ineffective [Unknown]
